FAERS Safety Report 5081982-4 (Version None)
Quarter: 2006Q3

REPORT INFORMATION
  Report Type: 
  Country: None (occurrence: None)
  Receive Date: 20060811
  Receipt Date: 20060731
  Transmission Date: 20061208
  Serious: Yes (Death, Life-Threatening, Hospitalization)
  Sender: FDA-Public Use
  Company Number: HQWYE096502MAR06

PATIENT
  Age: 66 Year
  Sex: Male

DRUGS (13)
  1. MYLOTARG [Suspect]
     Indication: ACUTE MYELOID LEUKAEMIA RECURRENT
     Dosage: A SINGLE 9 MG/M^2 DOSE, INTRAVENOUS DRIP
     Route: 041
     Dates: start: 20051202, end: 20051202
  2. CYTARABINE [Suspect]
     Indication: ACUTE MYELOID LEUKAEMIA RECURRENT
     Dosage: INTRAVENOUS
     Route: 042
     Dates: start: 20051213, end: 20051217
  3. DAUNORUBICIN HCL [Suspect]
     Indication: ACUTE MYELOID LEUKAEMIA RECURRENT
     Dosage: INTRAVENOUS
     Route: 042
     Dates: start: 20051213, end: 20051217
  4. DIFLUCAN [Concomitant]
  5. CLARITHROMYCIN [Concomitant]
  6. FAMOTIDINE [Concomitant]
  7. MUCOSTA (REBAMIPIDE) [Concomitant]
  8. FEPRAZONE (FEPRAZONE) [Concomitant]
  9. UNSPECIFIED ANTI-INFECTIVE AGENT (UNSPECIFIED ANTI-INEFECTIVE AGENT) [Concomitant]
  10. CARBENIN (BETAMIPRON/PANIPENEM) [Concomitant]
  11. BIKLIN (AMIKACIN SULFATE) [Concomitant]
  12. UNASYN S (AMPICILLIN SODIUM/SULBACTAM SODIUM) [Concomitant]
  13. TARGOCID [Concomitant]

REACTIONS (9)
  - BLOOD CREATININE INCREASED [None]
  - BLOOD POTASSIUM DECREASED [None]
  - BLOOD UREA INCREASED [None]
  - PERFORMANCE STATUS DECREASED [None]
  - PETECHIAE [None]
  - PLATELET COUNT DECREASED [None]
  - SEPSIS [None]
  - VENOOCCLUSIVE LIVER DISEASE [None]
  - WHITE BLOOD CELL COUNT DECREASED [None]
